FAERS Safety Report 22116310 (Version 1)
Quarter: 2023Q1

REPORT INFORMATION
  Report Type: Spontaneous
  Country: US (occurrence: US)
  Receive Date: 20230320
  Receipt Date: 20230320
  Transmission Date: 20230418
  Serious: No
  Sender: FDA-Public Use
  Company Number: US-SA-SAC20221017001299

PATIENT
  Age: 21 Year
  Sex: Male

DRUGS (1)
  1. DUPIXENT [Suspect]
     Active Substance: DUPILUMAB
     Indication: Dermatitis atopic
     Dosage: 300MG/2ML FREQUENCY: OTHER
     Route: 058
     Dates: start: 202209

REACTIONS (3)
  - Injection site dryness [Unknown]
  - Injection site erythema [Unknown]
  - Injection site swelling [Unknown]
